FAERS Safety Report 6230643-4 (Version None)
Quarter: 2009Q2

REPORT INFORMATION
  Report Type: 
  Country: None (occurrence: None)
  Receive Date: 20090615
  Receipt Date: 20090603
  Transmission Date: 20091009
  Serious: No
  Sender: FDA-Public Use
  Company Number: US-ABBOTT-09P-163-0570795-00

PATIENT
  Sex: Male
  Weight: 88.53 kg

DRUGS (1)
  1. TRILIPIX [Suspect]
     Indication: BLOOD CHOLESTEROL INCREASED
     Route: 048
     Dates: start: 20090301

REACTIONS (4)
  - ERYTHEMA [None]
  - PHOTOPHOBIA [None]
  - PRURITUS [None]
  - RASH PAPULAR [None]
